FAERS Safety Report 4283193-9 (Version None)
Quarter: 2004Q1

REPORT INFORMATION
  Report Type: 
  Country: None (occurrence: None)
  Receive Date: 20040129
  Receipt Date: 20040113
  Transmission Date: 20041129
  Serious: Yes (Other)
  Sender: FDA-Public Use
  Company Number: 2004005102

PATIENT
  Age: 1 Year
  Sex: Female

DRUGS (2)
  1. ATARAX [Suspect]
     Indication: ECZEMA
     Dosage: ORAL
     Route: 048
  2. STREPTOCOCCUS FAECALIS  (STREPTOCOCCUS FAECALIS) [Suspect]
     Indication: ENTEROCOLITIS
     Dosage: ORAL
     Route: 048

REACTIONS (2)
  - DEHYDRATION [None]
  - HAEMOGLOBINURIA [None]
